FAERS Safety Report 7888203-5 (Version None)
Quarter: 2011Q4

REPORT INFORMATION
  Report Type: 
  Country: None (occurrence: None)
  Receive Date: 20111103
  Receipt Date: 20111025
  Transmission Date: 20120403
  Serious: Yes (Hospitalization)
  Sender: FDA-Public Use
  Company Number: JP-SANOFI-AVENTIS-2011SA024976

PATIENT
  Age: 57 Year
  Sex: Male
  Weight: 56 kg

DRUGS (10)
  1. OXALIPLATIN [Suspect]
     Route: 041
  2. SENNOSIDE A [Concomitant]
     Indication: CONSTIPATION
     Route: 048
     Dates: start: 20110308
  3. TS-1 [Concomitant]
     Route: 048
     Dates: start: 20110317, end: 20110331
  4. MAGNESIUM SULFATE [Concomitant]
     Indication: CONSTIPATION
     Route: 048
     Dates: start: 20110215
  5. OXYCONTIN [Concomitant]
     Indication: CANCER PAIN
     Route: 048
     Dates: start: 20110224
  6. OXALIPLATIN [Suspect]
     Route: 041
     Dates: start: 20110224, end: 20110224
  7. TS-1 [Concomitant]
     Route: 048
     Dates: start: 20110224, end: 20110310
  8. RABEPRAZOLE SODIUM [Concomitant]
     Indication: PROPHYLAXIS AGAINST GASTROINTESTINAL ULCER
     Route: 048
     Dates: start: 20110207
  9. NAPROXEN [Concomitant]
     Indication: CANCER PAIN
     Route: 048
     Dates: start: 20110215
  10. OXALIPLATIN [Suspect]
     Route: 041
     Dates: start: 20110317, end: 20110317

REACTIONS (1)
  - HYDRONEPHROSIS [None]
